FAERS Safety Report 18062930 (Version 1)
Quarter: 2020Q3

REPORT INFORMATION
  Report Type: Spontaneous
  Country: US (occurrence: US)
  Receive Date: 20200723
  Receipt Date: 20200723
  Transmission Date: 20201103
  Serious: No
  Sender: FDA-Public Use
  Company Number: US-IGSA-SR10009727

PATIENT
  Age: 32 Year
  Sex: Female

DRUGS (1)
  1. GAMUNEX?C [Suspect]
     Active Substance: HUMAN IMMUNOGLOBULIN G
     Indication: POLYNEUROPATHY
     Dosage: 30 G, Q.3WK.
     Route: 042
     Dates: start: 20191112

REACTIONS (3)
  - Blood pressure fluctuation [Unknown]
  - Tissue injury [Unknown]
  - Oliguria [Unknown]

NARRATIVE: CASE EVENT DATE: 20191112
